FAERS Safety Report 23958494 (Version 2)
Quarter: 2024Q3

REPORT INFORMATION
  Report Type: Report from Study
  Country: US (occurrence: US)
  Receive Date: 20240610
  Receipt Date: 20240801
  Transmission Date: 20241017
  Serious: Yes (Other)
  Sender: JAZZ
  Company Number: US-JAZZ PHARMACEUTICALS-2024-US-008704

PATIENT
  Age: 17 Year
  Sex: Male

DRUGS (2)
  1. EPIDIOLEX [Suspect]
     Active Substance: CANNABIDIOL
     Indication: Product used for unknown indication
     Dosage: 6 MILLILITER, BID
     Route: 048
     Dates: start: 20240421
  2. CLOBAZAM [Suspect]
     Active Substance: CLOBAZAM
     Indication: Product used for unknown indication

REACTIONS (5)
  - Partial seizures [Recovered/Resolved]
  - Glioneuronal tumour [Not Recovered/Not Resolved]
  - Atonic seizures [Recovered/Resolved]
  - Diarrhoea [Not Recovered/Not Resolved]
  - Product dose omission issue [Recovered/Resolved]

NARRATIVE: CASE EVENT DATE: 20240618
